FAERS Safety Report 13613317 (Version 4)
Quarter: 2017Q3

REPORT INFORMATION
  Report Type: Spontaneous
  Country: US (occurrence: US)
  Receive Date: 20170605
  Receipt Date: 20170706
  Transmission Date: 20171127
  Serious: Yes (Hospitalization, Other)
  Sender: FDA-Public Use
  Company Number: US-ACTELION-A-US2017-154708

PATIENT
  Age: 40 Year
  Sex: Female
  Weight: 62.59 kg

DRUGS (2)
  1. OPSUMIT [Suspect]
     Active Substance: MACITENTAN
     Indication: PULMONARY ARTERIAL HYPERTENSION
     Dosage: 10 MG, QD
     Route: 048
  2. REMODULIN [Concomitant]
     Active Substance: TREPROSTINIL

REACTIONS (6)
  - Abscess [Unknown]
  - Fall [Unknown]
  - Disease progression [Unknown]
  - Hip fracture [Unknown]
  - Osteomyelitis [Unknown]
  - Pulmonary hypertension [Unknown]
